FAERS Safety Report 8361461-9 (Version None)
Quarter: 2012Q2

REPORT INFORMATION
  Report Type: 
  Country: None (occurrence: None)
  Receive Date: 20120514
  Receipt Date: 20120417
  Transmission Date: 20120825
  Serious: Yes (Hospitalization)
  Sender: FDA-Public Use
  Company Number: UA-025301

PATIENT
  Age: 61 Year
  Sex: Female

DRUGS (3)
  1. RITUXAN [Suspect]
     Indication: CHRONIC LYMPHOCYTIC LEUKAEMIA REFRACTORY
     Dosage: (375 MG/M2) INTRAVENOUS (NOT OTHERWISE SPECIFIED)
     Dates: start: 20111027
  2. LEUKERAN [Suspect]
     Indication: CHRONIC LYMPHOCYTIC LEUKAEMIA REFRACTORY
     Dosage: (18 MG/M2) INTRAVENOUS (NOT OTHERWISE SPECIFIED)
     Route: 042
     Dates: start: 20111027
  3. OFATUMMAB (OFATUMMAB) [Suspect]
     Indication: CHRONIC LYMPHOCYTIC LEUKAEMIA REFRACTORY
     Dosage: INTRAVENOUS (NOT OTHERWISE SPECIFIED)
     Route: 042
     Dates: start: 20111221

REACTIONS (2)
  - RESPIRATORY TRACT INFECTION VIRAL [None]
  - EAR INFECTION [None]
